FAERS Safety Report 8848043 (Version 1)
Quarter: 2012Q4

REPORT INFORMATION
  Report Type: 
  Country: US (occurrence: US)
  Receive Date: 20121018
  Receipt Date: 20121018
  Transmission Date: 20130627
  Serious: Yes (Hospitalization)
  Sender: FDA-Public Use
  Company Number: US-ELI_LILLY_AND_COMPANY-US201210003944

PATIENT
  Sex: Male

DRUGS (3)
  1. HUMALOG LISPRO [Suspect]
     Indication: DIABETES MELLITUS
     Dosage: 10 u, each morning
  2. HUMALOG LISPRO [Suspect]
     Dosage: 7 u, each evening
  3. LANTUS [Concomitant]
     Dosage: 20 u, each evening

REACTIONS (2)
  - Myocardial infarction [Recovered/Resolved]
  - Echocardiogram [Unknown]
